FAERS Safety Report 6998509-X (Version None)
Quarter: 2010Q3

REPORT INFORMATION
  Report Type: 
  Country: None (occurrence: None)
  Receive Date: 20100920
  Receipt Date: 20091105
  Transmission Date: 20110219
  Serious: Yes (Other)
  Sender: FDA-Public Use
  Company Number: US-ASTRAZENECA-2008UW27358

PATIENT
  Age: 510 Month
  Sex: Female
  Weight: 148.3 kg

DRUGS (8)
  1. SEROQUEL [Suspect]
     Indication: BIPOLAR DISORDER
     Route: 048
     Dates: start: 20021101, end: 20081001
  2. GEODON [Concomitant]
  3. HALDOL [Concomitant]
  4. RISPERDAL [Concomitant]
  5. STELAZINE [Concomitant]
  6. THORAZINE [Concomitant]
  7. TRILAFON [Concomitant]
  8. ZYPREXA [Concomitant]

REACTIONS (3)
  - DIABETES MELLITUS [None]
  - HYPERTENSION [None]
  - SUICIDE ATTEMPT [None]
